FAERS Safety Report 13910851 (Version 1)
Quarter: 2017Q3

REPORT INFORMATION
  Report Type: Spontaneous
  Country: US (occurrence: None)
  Receive Date: 20170825
  Receipt Date: 20170825
  Transmission Date: 20171127
  Serious: No
  Sender: FDA-Public Use
  Company Number: None

PATIENT
  Age: 55 Year
  Sex: Female

DRUGS (1)
  1. EPCLUSA [Suspect]
     Active Substance: SOFOSBUVIR\VELPATASVIR
     Dosage: 400-100MG QD ORAL
     Route: 048
     Dates: start: 20170805, end: 20170824

REACTIONS (2)
  - Headache [None]
  - Insomnia [None]

NARRATIVE: CASE EVENT DATE: 20170824
